FAERS Safety Report 7048103-X (Version None)
Quarter: 2010Q4

REPORT INFORMATION
  Report Type: 
  Country: None (occurrence: None)
  Receive Date: 20101015
  Receipt Date: 20101005
  Transmission Date: 20110411
  Serious: Yes (Other)
  Sender: FDA-Public Use
  Company Number: GXKR2010GB11260

PATIENT
  Sex: Female

DRUGS (3)
  1. RANITIDINE HCL [Suspect]
     Dosage: UNK
     Route: 065
  2. METOCLOPRAMIDE [Suspect]
     Route: 065
  3. CYCLIZINE [Suspect]
     Indication: MALAISE
     Dosage: 150 MG, TID
     Route: 048
     Dates: start: 20100916, end: 20100919

REACTIONS (3)
  - ABORTION SPONTANEOUS [None]
  - DRUG EXPOSURE DURING PREGNANCY [None]
  - HAEMORRHAGE [None]
